FAERS Safety Report 16679235 (Version 1)
Quarter: 2019Q3

REPORT INFORMATION
  Report Type: Spontaneous
  Country: US (occurrence: US)
  Receive Date: 20190624
  Receipt Date: 20190624
  Transmission Date: 20191004
  Serious: No
  Sender: FDA-Public Use
  Company Number: None

PATIENT
  Age: 81 Year
  Sex: Male

DRUGS (1)
  1. IMATINIB MESYLATE 400MG TEVA PHARMACUETICALS USA [Suspect]
     Active Substance: IMATINIB MESYLATE
     Indication: MALIGNANT CONNECTIVE TISSUE NEOPLASM
     Dosage: ?          OTHER FREQUENCY:ONE TIME DAILY ;?
     Route: 048
     Dates: start: 20160730

REACTIONS (4)
  - Fatigue [None]
  - Abdominal pain upper [None]
  - Abdominal pain [None]
  - Nail disorder [None]

NARRATIVE: CASE EVENT DATE: 20190601
